FAERS Safety Report 16986204 (Version 1)
Quarter: 2019Q4

REPORT INFORMATION
  Report Type: Spontaneous
  Country: US (occurrence: US)
  Receive Date: 20191101
  Receipt Date: 20191101
  Transmission Date: 20200122
  Serious: Yes (Hospitalization, Other)
  Sender: FDA-Public Use
  Company Number: US-GLAXOSMITHKLINE-US2019194709

PATIENT
  Age: 52 Year
  Sex: Male

DRUGS (4)
  1. VENTOLIN HFA [Suspect]
     Active Substance: ALBUTEROL SULFATE
     Indication: CHRONIC OBSTRUCTIVE PULMONARY DISEASE
  2. VENTOLIN HFA [Suspect]
     Active Substance: ALBUTEROL SULFATE
     Indication: ASTHMA
     Dosage: 2 PUFF(S), PRN
     Route: 055
  3. ALBUTEROL HFA [Suspect]
     Active Substance: ALBUTEROL SULFATE
     Indication: ASTHMA
     Dosage: 2 PUFF(S), PRN
     Route: 055
  4. ALBUTEROL HFA [Suspect]
     Active Substance: ALBUTEROL SULFATE
     Indication: CHRONIC OBSTRUCTIVE PULMONARY DISEASE

REACTIONS (3)
  - Pneumonectomy [Unknown]
  - Drug ineffective [Unknown]
  - Lung neoplasm malignant [Unknown]

NARRATIVE: CASE EVENT DATE: 2003
